FAERS Safety Report 21713475 (Version 3)
Quarter: 2023Q2

REPORT INFORMATION
  Report Type: Report from Study
  Country: US (occurrence: US)
  Receive Date: 20221212
  Receipt Date: 20230426
  Transmission Date: 20230722
  Serious: Yes (Hospitalization)
  Sender: FDA-Public Use
  Company Number: US-TAKEDA-2021TUS027945

PATIENT
  Age: 53 Year
  Sex: Female
  Weight: 60 kg

DRUGS (47)
  1. HUMAN IMMUNOGLOBULIN G [Suspect]
     Active Substance: HUMAN IMMUNOGLOBULIN G
     Indication: Iridocyclitis
     Dosage: 40 GRAM
     Route: 042
     Dates: start: 20190110
  2. HUMAN IMMUNOGLOBULIN G [Suspect]
     Active Substance: HUMAN IMMUNOGLOBULIN G
     Indication: Pemphigoid
     Dosage: 130 GRAM, Q4WEEKS
     Route: 042
     Dates: start: 20190110
  3. HUMAN IMMUNOGLOBULIN G [Suspect]
     Active Substance: HUMAN IMMUNOGLOBULIN G
     Indication: Osteoarthritis
  4. DIPHENHYDRAMINE [Concomitant]
     Active Substance: DIPHENHYDRAMINE
  5. HEPARIN [Concomitant]
     Active Substance: HEPARIN SODIUM
  6. DIPHENHYDRAMINE HYDROCHLORIDE [Concomitant]
     Active Substance: DIPHENHYDRAMINE HYDROCHLORIDE
     Route: 065
  7. PIMECROLIMUS [Concomitant]
     Active Substance: PIMECROLIMUS
  8. EPINEPHRINE [Concomitant]
     Active Substance: EPINEPHRINE
     Dosage: UNK
  9. SODIUM CHLORIDE [Concomitant]
     Active Substance: SODIUM CHLORIDE
     Dosage: UNK
  10. METHOTREXATE SODIUM [Concomitant]
     Active Substance: METHOTREXATE SODIUM
     Route: 065
  11. NYSTATIN [Concomitant]
     Active Substance: NYSTATIN
  12. MAGNESIUM CITRATE [Concomitant]
     Active Substance: MAGNESIUM CITRATE
     Route: 065
  13. DUREZOL [Concomitant]
     Active Substance: DIFLUPREDNATE
  14. IBUPROFEN [Concomitant]
     Active Substance: IBUPROFEN
  15. TRIAMCINOLONE ACETONIDE [Concomitant]
     Active Substance: TRIAMCINOLONE ACETONIDE
  16. PREVIDENT [Concomitant]
     Active Substance: SODIUM FLUORIDE
  17. PAZEO [Concomitant]
     Active Substance: OLOPATADINE HYDROCHLORIDE
  18. ACETAMINOPHEN [Concomitant]
     Active Substance: ACETAMINOPHEN
     Dosage: UNK
  19. CLOBETASOL [Concomitant]
     Active Substance: CLOBETASOL
  20. XIIDRA [Concomitant]
     Active Substance: LIFITEGRAST
  21. TACROLIMUS [Concomitant]
     Active Substance: TACROLIMUS
  22. YUVAFEM [Concomitant]
     Active Substance: ESTRADIOL HEMIHYDRATE
  23. CEVIMELINE [Concomitant]
     Active Substance: CEVIMELINE
  24. LAMOTRIGINE [Concomitant]
     Active Substance: LAMOTRIGINE
  25. ADDERALL [Concomitant]
     Active Substance: AMPHETAMINE ASPARTATE\AMPHETAMINE SULFATE\DEXTROAMPHETAMINE SACCHARATE\DEXTROAMPHETAMINE SULFATE
  26. FOLIC ACID [Concomitant]
     Active Substance: FOLIC ACID
  27. FINACEA [Concomitant]
     Active Substance: AZELAIC ACID
  28. LIDODERM [Concomitant]
     Active Substance: LIDOCAINE
     Dosage: UNK
  29. SOLU-MEDROL [Concomitant]
     Active Substance: METHYLPREDNISOLONE SODIUM SUCCINATE
     Dosage: UNK
  30. LIDOCAINE [Concomitant]
     Active Substance: LIDOCAINE
  31. LEVOTHYROXINE [Concomitant]
     Active Substance: LEVOTHYROXINE
  32. DEXTROSE [Concomitant]
     Active Substance: DEXTROSE\DEXTROSE MONOHYDRATE
     Dosage: UNK
  33. SODIUM CHLORIDE [Concomitant]
     Active Substance: SODIUM CHLORIDE
  34. RESTASIS [Concomitant]
     Active Substance: CYCLOSPORINE
  35. ACTEMRA [Concomitant]
     Active Substance: TOCILIZUMAB
  36. ALOE VERA LEAF [Concomitant]
     Active Substance: ALOE VERA LEAF
  37. NICOTINAMIDE [Concomitant]
     Active Substance: NIACINAMIDE
  38. HYDROCORTISONE [Concomitant]
     Active Substance: HYDROCORTISONE
  39. ADENINE [Concomitant]
     Active Substance: ADENINE
  40. PILOCARPINE HYDROCHLORIDE [Concomitant]
     Active Substance: PILOCARPINE HYDROCHLORIDE
  41. VENTOLIN [Concomitant]
     Active Substance: ALBUTEROL SULFATE
  42. LEUCOVORIN [Concomitant]
     Active Substance: LEUCOVORIN
  43. ACTHAR [Concomitant]
     Active Substance: CORTICOTROPIN
  44. HERBALS\TURMERIC [Concomitant]
     Active Substance: HERBALS\TURMERIC
  45. ALBUTEROL SULFATE [Concomitant]
     Active Substance: ALBUTEROL SULFATE
  46. RITUXAN [Concomitant]
     Active Substance: RITUXIMAB
  47. CEVIMELINE HYDROCHLORIDE [Concomitant]
     Active Substance: CEVIMELINE HYDROCHLORIDE

REACTIONS (21)
  - COVID-19 [Unknown]
  - Injury associated with device [Unknown]
  - Skin discolouration [Unknown]
  - Skin infection [Unknown]
  - Muscle tightness [Recovering/Resolving]
  - Dysphagia [Unknown]
  - Taste disorder [Recovering/Resolving]
  - Dry mouth [Unknown]
  - Allergy to arthropod sting [Unknown]
  - Sensitive skin [Unknown]
  - Blister [Unknown]
  - Discomfort [Unknown]
  - Feeling abnormal [Recovering/Resolving]
  - Palpitations [Unknown]
  - Contusion [Unknown]
  - Dysgeusia [Unknown]
  - Nausea [Recovering/Resolving]
  - Erythema [Unknown]
  - Headache [Recovering/Resolving]
  - Device infusion issue [Unknown]
  - Product use in unapproved indication [Unknown]

NARRATIVE: CASE EVENT DATE: 20190110
